FAERS Safety Report 9149919 (Version 1)
Quarter: 2013Q1

REPORT INFORMATION
  Report Type: Spontaneous
  Country: US (occurrence: US)
  Receive Date: 20130308
  Receipt Date: 20130308
  Transmission Date: 20140127
  Serious: Yes (Other)
  Sender: FDA-Public Use
  Company Number: US-ASTRAZENECA-2013SE13900

PATIENT
  Age: 84 Year
  Sex: Male
  Weight: 54.4 kg

DRUGS (13)
  1. NEXIUM [Suspect]
     Indication: DUODENAL ULCER
     Route: 048
     Dates: start: 201208, end: 201209
  2. NEXIUM [Suspect]
     Indication: DUODENAL ULCER
     Route: 048
  3. NEXIUM [Suspect]
     Indication: DUODENAL ULCER
     Route: 048
     Dates: start: 20130226
  4. PREVACID [Suspect]
     Route: 065
     Dates: start: 201209, end: 201301
  5. NORVASC [Concomitant]
     Indication: HYPERTENSION
     Route: 048
  6. PROCRIT [Concomitant]
     Indication: ANAEMIA
     Dosage: 1000UNIT
     Route: 058
     Dates: start: 201302
  7. IRON [Concomitant]
     Indication: ANAEMIA
     Route: 048
  8. B12 [Concomitant]
     Indication: ENERGY INCREASED
     Dosage: 1CC WEEK
     Route: 058
  9. SYNTHROID [Concomitant]
     Indication: THYROID DISORDER
     Route: 048
     Dates: start: 1993
  10. PSYLLIUM [Concomitant]
     Indication: CONSTIPATION
     Route: 048
  11. SENNE [Concomitant]
     Indication: CONSTIPATION
     Route: 048
  12. PERCOCET [Concomitant]
     Indication: PAIN
     Route: 048
  13. BIO-K [Concomitant]
     Indication: SUPPLEMENTATION THERAPY
     Dosage: DAILY
     Route: 048

REACTIONS (9)
  - Renal failure [Unknown]
  - Hypotension [Unknown]
  - Decreased appetite [Unknown]
  - Weight fluctuation [Unknown]
  - Weight decreased [Unknown]
  - Pain [Unknown]
  - Blood pressure increased [Unknown]
  - Dizziness [Recovered/Resolved]
  - Off label use [Recovered/Resolved]
